FAERS Safety Report 20753122 (Version 1)
Quarter: 2022Q2

REPORT INFORMATION
  Report Type: Spontaneous
  Country: US (occurrence: None)
  Receive Date: 20220426
  Receipt Date: 20220426
  Transmission Date: 20220721
  Serious: No
  Sender: FDA-Public Use
  Company Number: US-ROCHE-3017073

PATIENT
  Age: 69 Year
  Sex: Female

DRUGS (2)
  1. ESBRIET [Suspect]
     Active Substance: PIRFENIDONE
     Indication: Product used for unknown indication
     Dosage: TID
     Route: 048
     Dates: start: 202003
  2. ZOFRAN [Concomitant]
     Active Substance: ONDANSETRON HYDROCHLORIDE

REACTIONS (4)
  - Illness [Unknown]
  - Nausea [Unknown]
  - Constipation [Unknown]
  - COVID-19 [Unknown]

NARRATIVE: CASE EVENT DATE: 20220131
